FAERS Safety Report 7434462-2 (Version None)
Quarter: 2011Q2

REPORT INFORMATION
  Report Type: 
  Country: None (occurrence: None)
  Receive Date: 20110425
  Receipt Date: 20110420
  Transmission Date: 20111010
  Serious: Yes (Hospitalization)
  Sender: FDA-Public Use
  Company Number: FR-AMGEN-FRASP2011015632

PATIENT
  Age: 48 Year
  Sex: Male
  Weight: 78 kg

DRUGS (7)
  1. CACIT D3 [Concomitant]
  2. MABTHERA [Concomitant]
     Dosage: UNK
     Dates: start: 20110126
  3. NEXIUM [Concomitant]
     Dosage: 20 MG, QD
     Route: 048
     Dates: start: 20110112
  4. LOVENOX [Concomitant]
     Dosage: 0.7 UNK, UNK
     Route: 058
     Dates: start: 20110311
  5. NPLATE [Suspect]
     Indication: THROMBOCYTOPENIC PURPURA
     Dosage: 250 A?G, UNK
     Route: 058
     Dates: start: 20110224, end: 20110303
  6. VIREAD                             /01490001/ [Concomitant]
     Dosage: 245 MG, QD
     Route: 048
     Dates: start: 20110122
  7. CORTANCYL [Concomitant]
     Dosage: 60 MG, UNK
     Dates: start: 20110113

REACTIONS (5)
  - DEEP VEIN THROMBOSIS [None]
  - PULMONARY EMBOLISM [None]
  - DYSPNOEA [None]
  - THROMBOCYTOSIS [None]
  - PNEUMOCYSTIS JIROVECI PNEUMONIA [None]
